FAERS Safety Report 22077365 (Version 1)
Quarter: 2023Q1

REPORT INFORMATION
  Report Type: Spontaneous
  Country: JP (occurrence: JP)
  Receive Date: 20230309
  Receipt Date: 20230309
  Transmission Date: 20230417
  Serious: Yes (Hospitalization)
  Sender: FDA-Public Use
  Company Number: A202300123-002

PATIENT
  Sex: Female

DRUGS (12)
  1. BENDAMUSTINE HYDROCHLORIDE [Suspect]
     Active Substance: BENDAMUSTINE HYDROCHLORIDE
     Indication: Waldenstrom^s macroglobulinaemia
     Dosage: UNK, CYCLE 1 BR THERAPY
     Route: 042
  2. BENDAMUSTINE HYDROCHLORIDE [Suspect]
     Active Substance: BENDAMUSTINE HYDROCHLORIDE
     Dosage: UNK, CYCLE 2 BR THERAPY
     Route: 042
  3. BENDAMUSTINE HYDROCHLORIDE [Suspect]
     Active Substance: BENDAMUSTINE HYDROCHLORIDE
     Dosage: UNK, CYCLE 3 BR THERAPY
     Route: 042
  4. BENDAMUSTINE HYDROCHLORIDE [Suspect]
     Active Substance: BENDAMUSTINE HYDROCHLORIDE
     Dosage: UNK, CYCLE 4 BR THERAPY
     Route: 042
  5. BENDAMUSTINE HYDROCHLORIDE [Suspect]
     Active Substance: BENDAMUSTINE HYDROCHLORIDE
     Dosage: UNK, CYCLE 5 BR THERAPY
     Route: 042
  6. BENDAMUSTINE HYDROCHLORIDE [Suspect]
     Active Substance: BENDAMUSTINE HYDROCHLORIDE
     Dosage: UNK, CYCLE 6 BR THERAPY
     Route: 042
     Dates: start: 202211
  7. RITUXAN [Concomitant]
     Active Substance: RITUXIMAB
     Indication: Waldenstrom^s macroglobulinaemia
     Dosage: UNK, CYCLE 1 BR THERAPY
     Route: 042
  8. RITUXAN [Concomitant]
     Active Substance: RITUXIMAB
     Dosage: UNK, CYCLE 2 BR THERAPY
     Route: 042
  9. RITUXAN [Concomitant]
     Active Substance: RITUXIMAB
     Dosage: UNK, CYCLE 3 BR THERAPY
     Route: 042
  10. RITUXAN [Concomitant]
     Active Substance: RITUXIMAB
     Dosage: UNK, CYCLE 4 BR THERAPY
     Route: 042
  11. RITUXAN [Concomitant]
     Active Substance: RITUXIMAB
     Dosage: UNK, CYCLE 5 BR THERAPY
     Route: 042
  12. RITUXAN [Concomitant]
     Active Substance: RITUXIMAB
     Dosage: UNK, CYCLE 6 BR THERAPY
     Route: 042
     Dates: start: 202211

REACTIONS (1)
  - Coronavirus infection [Recovered/Resolved]

NARRATIVE: CASE EVENT DATE: 20230101
